FAERS Safety Report 15139167 (Version 2)
Quarter: 2018Q3

REPORT INFORMATION
  Report Type: Spontaneous
  Country: US (occurrence: US)
  Receive Date: 20180713
  Receipt Date: 20180714
  Transmission Date: 20181010
  Serious: No
  Sender: FDA-Public Use
  Company Number: US-JNJFOC-20180623861

PATIENT
  Age: 18 Year
  Sex: Male
  Weight: 68.04 kg

DRUGS (2)
  1. RISPERDAL [Suspect]
     Active Substance: RISPERIDONE
     Indication: OBSESSIVE THOUGHTS
     Dosage: FOR 3 DAYS
     Route: 048
     Dates: start: 201608, end: 201608
  2. RISPERDAL [Suspect]
     Active Substance: RISPERIDONE
     Indication: OBSESSIVE THOUGHTS
     Dosage: FOR 3 MONTHS
     Route: 048
     Dates: start: 201609, end: 201612

REACTIONS (8)
  - Cognitive disorder [Not Recovered/Not Resolved]
  - Thinking abnormal [Unknown]
  - Decreased interest [Not Recovered/Not Resolved]
  - Nipple swelling [Not Recovered/Not Resolved]
  - Blood testosterone abnormal [Unknown]
  - Drug dose omission [Unknown]
  - Product use in unapproved indication [Unknown]
  - Weight increased [Not Recovered/Not Resolved]

NARRATIVE: CASE EVENT DATE: 201608
